FAERS Safety Report 7950506-3 (Version None)
Quarter: 2011Q4

REPORT INFORMATION
  Report Type: 
  Country: None (occurrence: None)
  Receive Date: 20111130
  Receipt Date: 20111122
  Transmission Date: 20120403
  Serious: Yes (Hospitalization)
  Sender: FDA-Public Use
  Company Number: US-ASTRAZENECA-2011SE51153

PATIENT
  Age: 72 Year
  Sex: Female
  Weight: 57.2 kg

DRUGS (10)
  1. CRESTOR [Suspect]
     Route: 048
  2. IMMUNO THERAPY [Concomitant]
     Indication: HYPERSENSITIVITY
     Route: 050
  3. DETROL [Concomitant]
     Indication: BLADDER DISORDER
     Route: 048
  4. RESTASIS [Concomitant]
     Indication: DRY EYE
     Dosage: BID
     Route: 050
  5. COMBIVENT [Concomitant]
     Indication: ASTHMA
     Route: 055
  6. SINTULAIR [Concomitant]
     Indication: HYPERSENSITIVITY
     Route: 048
  7. ALBUTEROL [Concomitant]
     Indication: ASTHMA
  8. OMNARIS [Concomitant]
     Indication: NASAL DISORDER
     Route: 045
  9. CRESTOR [Suspect]
     Indication: HYPERCHLORAEMIA
     Route: 048
     Dates: start: 20070101, end: 20100601
  10. AMLODIPINE [Concomitant]
     Indication: ASTHMA

REACTIONS (5)
  - HEADACHE [None]
  - SLEEP APNOEA SYNDROME [None]
  - DRUG INTOLERANCE [None]
  - MYALGIA [None]
  - ASTHMA [None]
